FAERS Safety Report 7144846-8 (Version None)
Quarter: 2010Q4

REPORT INFORMATION
  Report Type: 
  Country: None (occurrence: None)
  Receive Date: 20101208
  Receipt Date: 20101124
  Transmission Date: 20110411
  Serious: Yes (Death, Other)
  Sender: FDA-Public Use
  Company Number: JP-CELGENEUS-087-21880-10112826

PATIENT
  Sex: Male

DRUGS (4)
  1. REVLIMID [Suspect]
     Indication: MULTIPLE MYELOMA
     Route: 048
     Dates: start: 20100910, end: 20100923
  2. REVLIMID [Suspect]
     Route: 048
     Dates: start: 20101001, end: 20101008
  3. LENADEX [Suspect]
     Indication: MULTIPLE MYELOMA
     Route: 048
     Dates: start: 20100910, end: 20100928
  4. LENADEX [Suspect]
     Route: 048
     Dates: start: 20101001, end: 20101004

REACTIONS (3)
  - NEUTROPENIA [None]
  - PNEUMONIA ASPIRATION [None]
  - THROMBOCYTOPENIA [None]
